FAERS Safety Report 7245851-3 (Version None)
Quarter: 2011Q1

REPORT INFORMATION
  Report Type: 
  Country: None (occurrence: None)
  Receive Date: 20110126
  Receipt Date: 20110118
  Transmission Date: 20110831
  Serious: Yes (Hospitalization, Disabling, Other)
  Sender: FDA-Public Use
  Company Number: US-MERCK-1009USA01010

PATIENT
  Age: 65 Year
  Sex: Female
  Weight: 80 kg

DRUGS (7)
  1. FOSAMAX [Suspect]
     Route: 048
     Dates: start: 20060101, end: 20081001
  2. FOSAMAX [Suspect]
     Route: 048
  3. FOSAMAX [Suspect]
     Route: 048
     Dates: start: 20000101, end: 20060101
  4. PREMARIN [Concomitant]
     Route: 065
  5. SYNTHROID [Concomitant]
     Indication: HYPOTHYROIDISM
     Route: 048
  6. FOSAMAX [Suspect]
     Indication: OSTEOPOROSIS
     Route: 048
     Dates: start: 19950601, end: 19990101
  7. ALENDRONATE SODIUM [Suspect]
     Route: 065
     Dates: start: 20081001

REACTIONS (35)
  - FALL [None]
  - BURSITIS [None]
  - LOW TURNOVER OSTEOPATHY [None]
  - SKIN CANCER [None]
  - ASTHENIA [None]
  - ARTHRALGIA [None]
  - HEPATITIS A [None]
  - ABDOMINAL TENDERNESS [None]
  - ANKLE FRACTURE [None]
  - IMPAIRED HEALING [None]
  - BREAST DISORDER [None]
  - NIGHT BLINDNESS [None]
  - INTERVERTEBRAL DISC DEGENERATION [None]
  - KERATOCONJUNCTIVITIS SICCA [None]
  - HYPERLIPIDAEMIA [None]
  - FOOT FRACTURE [None]
  - VOMITING [None]
  - SKIN DISORDER [None]
  - ROSACEA [None]
  - CATARACT [None]
  - APPENDIX DISORDER [None]
  - SPINAL DISORDER [None]
  - NEUROPATHY PERIPHERAL [None]
  - HEPATIC ENZYME INCREASED [None]
  - BREAST CYST [None]
  - FEMUR FRACTURE [None]
  - GAIT DISTURBANCE [None]
  - SKIN LESION [None]
  - RHINITIS ALLERGIC [None]
  - CUTIS LAXA [None]
  - OSTEOPOROSIS [None]
  - NAUSEA [None]
  - HYPERTENSION [None]
  - SACROILIITIS [None]
  - MAMMOGRAM ABNORMAL [None]
